FAERS Safety Report 18189149 (Version 1)
Quarter: 2020Q3

REPORT INFORMATION
  Report Type: Spontaneous
  Country: US (occurrence: US)
  Receive Date: 20200824
  Receipt Date: 20200824
  Transmission Date: 20201103
  Serious: Yes (Death, Other)
  Sender: FDA-Public Use
  Company Number: US-JAZZ-2020-US-008134

PATIENT
  Age: 3 Year
  Sex: Female

DRUGS (1)
  1. VYXEOS [Suspect]
     Active Substance: CYTARABINE\DAUNORUBICIN
     Indication: ACUTE MYELOID LEUKAEMIA
     Dosage: 135 MG PER METER SQUARE
     Route: 065

REACTIONS (4)
  - Dose calculation error [Unknown]
  - Blood copper increased [Unknown]
  - Disease progression [Fatal]
  - Off label use [Unknown]
